FAERS Safety Report 5455931-0 (Version None)
Quarter: 2007Q3

REPORT INFORMATION
  Report Type: 
  Country: None (occurrence: None)
  Receive Date: 20070914
  Receipt Date: 20070914
  Transmission Date: 20080115
  Serious: Yes (Hospitalization)
  Sender: FDA-Public Use
  Company Number: None

PATIENT
  Sex: Male
  Weight: 122.3 kg

DRUGS (1)
  1. WARFARIN SODIUM [Suspect]
     Indication: ATRIAL FIBRILLATION
     Dosage: 5MG  DAILY  PO
     Route: 048

REACTIONS (4)
  - BRAIN STEM HAEMORRHAGE [None]
  - COAGULOPATHY [None]
  - NAUSEA [None]
  - VOMITING [None]
